FAERS Safety Report 8935392 (Version 1)
Quarter: 2012Q4

REPORT INFORMATION
  Report Type: Spontaneous
  Country: US (occurrence: None)
  Receive Date: 20121127
  Receipt Date: 20121127
  Transmission Date: 20130627
  Serious: No
  Sender: FDA-Public Use
  Company Number: None

PATIENT
  Age: 46 Year
  Sex: Female

DRUGS (9)
  1. LETAIRIS [Suspect]
     Indication: PULMONARY ARTERIAL HYPERTENSION
     Route: 048
     Dates: start: 20121029
  2. ASPIRIN [Concomitant]
  3. FUROSEMIDE [Concomitant]
  4. ADCIRCA [Concomitant]
  5. DIGOXIN [Concomitant]
  6. LOSARTAN [Concomitant]
  7. METFORMIN [Concomitant]
  8. SIMVASTATIN [Concomitant]
  9. ATROVENT INHALER [Concomitant]

REACTIONS (5)
  - Hypotension [None]
  - Fatigue [None]
  - Extrasystoles [None]
  - Palpitations [None]
  - Drug interaction [None]
